FAERS Safety Report 17795117 (Version 2)
Quarter: 2020Q2

REPORT INFORMATION
  Report Type: Spontaneous
  Country: JP (occurrence: JP)
  Receive Date: 20200515
  Receipt Date: 20200602
  Transmission Date: 20200714
  Serious: Yes (Life-Threatening, Hospitalization, Other)
  Sender: FDA-Public Use
  Company Number: JP-ASCEND THERAPEUTICS US, LLC-2083841

PATIENT
  Age: 41 Year
  Sex: Female

DRUGS (7)
  1. HYDROXYCHLOROQUINE (HYDROXYCHLOROQUINE), UNKNOWN [Suspect]
     Active Substance: HYDROXYCHLOROQUINE
  2. PROGESTERONE (PROGESTERONE) (VAGINAL TABLET), UNKNOWN [Suspect]
     Active Substance: PROGESTERONE
     Route: 067
  3. ESTROGEL [Suspect]
     Active Substance: ESTRADIOL
     Indication: HORMONE THERAPY
  4. TACROLIMUS MONOHYDRATE (TACROLIMUS MONOHYDRATE), UNKNOWN [Suspect]
     Active Substance: TACROLIMUS
  5. DYDROGESTERONE (DYDROGESTERONE), UNKNOWN [Suspect]
     Active Substance: DYDROGESTERONE
     Route: 048
  6. PREDNISOLONE. [Suspect]
     Active Substance: PREDNISOLONE
  7. ESTRADIOL. [Suspect]
     Active Substance: ESTRADIOL
     Route: 062

REACTIONS (10)
  - Pre-eclampsia [Recovered/Resolved]
  - Adrenal disorder [Recovered/Resolved]
  - Proteinuria [Recovered/Resolved]
  - Pelvic infection [Recovered/Resolved]
  - Vaginal haemorrhage [Recovered/Resolved]
  - Maternal exposure during pregnancy [Recovered/Resolved]
  - Hormone level abnormal [Recovered/Resolved]
  - Placenta accreta [Recovered/Resolved]
  - Hypogonadism [Recovered/Resolved]
  - Infarction [Recovered/Resolved]
